FAERS Safety Report 21648717 (Version 1)
Quarter: 2022Q4

REPORT INFORMATION
  Report Type: Other
  Country: PL (occurrence: PL)
  Receive Date: 20221128
  Receipt Date: 20221128
  Transmission Date: 20230113
  Serious: Yes (Hospitalization, Other)
  Sender: FDA-Public Use
  Company Number: PL-ROCHE-3218017

PATIENT
  Age: 10 Year
  Sex: Male

DRUGS (3)
  1. RITUXIMAB [Suspect]
     Active Substance: RITUXIMAB
     Indication: Post transplant lymphoproliferative disorder
     Dosage: CONCENTRATE FOR SOLUTION FOR INFUSION
     Route: 065
  2. PRAVASTATIN [Concomitant]
     Active Substance: PRAVASTATIN
     Indication: Post transplant lymphoproliferative disorder
  3. TACROLIMUS [Concomitant]
     Active Substance: TACROLIMUS
     Indication: Post transplant lymphoproliferative disorder

REACTIONS (5)
  - Skin lesion [Unknown]
  - Off label use [Unknown]
  - Epstein-Barr virus infection [Unknown]
  - Condition aggravated [Unknown]
  - Epstein-Barr virus infection reactivation [Unknown]
